FAERS Safety Report 10167153 (Version 1)
Quarter: 2014Q2

REPORT INFORMATION
  Report Type: Spontaneous
  Country: US (occurrence: US)
  Receive Date: 20140512
  Receipt Date: 20140512
  Transmission Date: 20141212
  Serious: Yes (Hospitalization)
  Sender: FDA-Public Use
  Company Number: US-BAXTER-2014BAX022010

PATIENT
  Sex: Female

DRUGS (1)
  1. DIANEAL LOW CALCIUM [Suspect]
     Indication: PERITONEAL DIALYSIS
     Route: 033
     Dates: start: 201007

REACTIONS (4)
  - Cellulitis [Recovering/Resolving]
  - Blister [Not Recovered/Not Resolved]
  - Peripheral vascular disorder [Unknown]
  - Gangrene [Not Recovered/Not Resolved]
